FAERS Safety Report 15034073 (Version 3)
Quarter: 2019Q3

REPORT INFORMATION
  Report Type: Spontaneous
  Country: US (occurrence: US)
  Receive Date: 20180620
  Receipt Date: 20190716
  Transmission Date: 20191004
  Serious: No
  Sender: FDA-Public Use
  Company Number: US-AMGEN-USASP2018081473

PATIENT
  Age: 74 Year
  Sex: Female

DRUGS (4)
  1. ENBREL [Suspect]
     Active Substance: ETANERCEPT
     Indication: PSORIATIC ARTHROPATHY
  2. ENBREL [Suspect]
     Active Substance: ETANERCEPT
     Indication: PSORIASIS
  3. ENBREL [Suspect]
     Active Substance: ETANERCEPT
     Indication: RHEUMATOID ARTHRITIS
     Dosage: 50 MILLIGRAM, QWK
     Route: 065
     Dates: start: 20180525
  4. ENBREL [Suspect]
     Active Substance: ETANERCEPT
     Indication: OSTEOARTHRITIS

REACTIONS (8)
  - Skin exfoliation [Unknown]
  - Muscle spasms [Unknown]
  - Corrective lens user [Unknown]
  - Pain [Unknown]
  - Walking aid user [Unknown]
  - Weight increased [Unknown]
  - Erythema [Unknown]
  - Arthralgia [Unknown]

NARRATIVE: CASE EVENT DATE: 201805
